FAERS Safety Report 5219592-8 (Version None)
Quarter: 2007Q1

REPORT INFORMATION
  Report Type: 
  Country: None (occurrence: None)
  Receive Date: 20070125
  Receipt Date: 20070110
  Transmission Date: 20070707
  Serious: Yes (Death)
  Sender: FDA-Public Use
  Company Number: US-SHR-US-2006-030226

PATIENT
  Sex: Female

DRUGS (10)
  1. BETASERON [Suspect]
     Dosage: UNK MIU, UNK
     Route: 058
     Dates: start: 19960401, end: 19990501
  2. NOVANTRONE [Suspect]
  3. AVONEX [Concomitant]
  4. BACLOFEN [Concomitant]
  5. XANAX [Concomitant]
  6. NEURONTIN [Concomitant]
  7. PERCOCET [Concomitant]
  8. PRENATAL VITAMINS [Concomitant]
  9. DETROL [Concomitant]
  10. B-COMPLEX ^KRKA^ [Concomitant]

REACTIONS (1)
  - EJECTION FRACTION DECREASED [None]
